FAERS Safety Report 25534797 (Version 1)
Quarter: 2025Q3

REPORT INFORMATION
  Report Type: Spontaneous
  Country: EU (occurrence: EU)
  Receive Date: 20250709
  Receipt Date: 20250709
  Transmission Date: 20251021
  Serious: Yes (Life-Threatening)
  Sender: PFIZER
  Company Number: None

PATIENT
  Age: 65 Year
  Sex: Female
  Weight: 78 kg

DRUGS (20)
  1. IRINOTECAN [Suspect]
     Active Substance: IRINOTECAN
     Indication: Rectal cancer
     Route: 042
     Dates: start: 20250523, end: 20250523
  2. IRINOTECAN [Suspect]
     Active Substance: IRINOTECAN
     Route: 042
     Dates: start: 20250606, end: 20250606
  3. IRINOTECAN [Suspect]
     Active Substance: IRINOTECAN
     Route: 042
     Dates: start: 20250620, end: 20250620
  4. FOLIC ACID [Suspect]
     Active Substance: FOLIC ACID
     Indication: Rectal cancer
     Route: 042
     Dates: start: 20250523, end: 20250523
  5. FOLIC ACID [Suspect]
     Active Substance: FOLIC ACID
     Route: 042
     Dates: start: 20250606, end: 20250606
  6. FOLIC ACID [Suspect]
     Active Substance: FOLIC ACID
     Route: 042
     Dates: start: 20250620, end: 20250620
  7. OXALIPLATIN [Concomitant]
     Active Substance: OXALIPLATIN
     Indication: Rectal cancer
     Route: 042
     Dates: start: 20250523, end: 20250523
  8. OXALIPLATIN [Concomitant]
     Active Substance: OXALIPLATIN
     Route: 042
     Dates: start: 20250606, end: 20250606
  9. EMEND [Concomitant]
     Active Substance: APREPITANT
     Indication: Chemotherapy side effect prophylaxis
     Route: 048
     Dates: start: 20250523, end: 20250523
  10. EMEND [Concomitant]
     Active Substance: APREPITANT
     Route: 048
     Dates: start: 20250606, end: 20250606
  11. EMEND [Concomitant]
     Active Substance: APREPITANT
     Route: 048
     Dates: start: 20250620, end: 20250620
  12. ONDANSETRON [Concomitant]
     Active Substance: ONDANSETRON
     Indication: Chemotherapy side effect prophylaxis
     Route: 042
     Dates: start: 20250523, end: 20250523
  13. ONDANSETRON [Concomitant]
     Active Substance: ONDANSETRON
     Route: 042
     Dates: start: 20250606, end: 20250606
  14. ONDANSETRON [Concomitant]
     Active Substance: ONDANSETRON
     Route: 042
     Dates: start: 20250620, end: 20250620
  15. DEXAMETHASONE [Concomitant]
     Active Substance: DEXAMETHASONE
     Indication: Chemotherapy side effect prophylaxis
     Route: 042
     Dates: start: 20250523, end: 20250523
  16. DEXAMETHASONE [Concomitant]
     Active Substance: DEXAMETHASONE
     Route: 042
     Dates: start: 20250606, end: 20250606
  17. DEXAMETHASONE [Concomitant]
     Active Substance: DEXAMETHASONE
     Route: 042
     Dates: start: 20250620, end: 20250620
  18. ATROPINSULFAT [Concomitant]
     Indication: Chemotherapy side effect prophylaxis
     Route: 058
     Dates: start: 20250523, end: 20250523
  19. ATROPINSULFAT [Concomitant]
     Route: 058
     Dates: start: 20250606, end: 20250606
  20. ATROPINSULFAT [Concomitant]
     Route: 058
     Dates: start: 20250620, end: 20250620

REACTIONS (1)
  - Infusion related reaction [Recovered/Resolved]

NARRATIVE: CASE EVENT DATE: 20250523
